FAERS Safety Report 9282124 (Version 1)
Quarter: 2013Q2

REPORT INFORMATION
  Report Type: Spontaneous
  Country: US (occurrence: None)
  Receive Date: 20130508
  Receipt Date: 20130508
  Transmission Date: 20140414
  Serious: No
  Sender: FDA-Public Use
  Company Number: None

PATIENT
  Age: 20 Year
  Sex: Male
  Weight: 83.2 kg

DRUGS (1)
  1. INSULIN LANTUS [Suspect]
     Dosage: MEALS QHS
     Route: 058

REACTIONS (1)
  - Blood glucose increased [None]
